FAERS Safety Report 17124198 (Version 2)
Quarter: 2019Q4

REPORT INFORMATION
  Report Type: Spontaneous
  Country: US (occurrence: US)
  Receive Date: 20191206
  Receipt Date: 20191216
  Transmission Date: 20200122
  Serious: Yes (Other)
  Sender: FDA-Public Use
  Company Number: US-NOVOPROD-700265

PATIENT
  Age: 77 Year
  Sex: Female

DRUGS (1)
  1. VICTOZA [Suspect]
     Active Substance: LIRAGLUTIDE
     Indication: TYPE 2 DIABETES MELLITUS
     Dosage: 1.2 MG, QD
     Route: 058
     Dates: start: 2018

REACTIONS (3)
  - Bronchitis [Recovering/Resolving]
  - Pertussis [Recovered/Resolved]
  - Blood glucose increased [Recovering/Resolving]

NARRATIVE: CASE EVENT DATE: 201910
